FAERS Safety Report 4964031-5 (Version None)
Quarter: 2006Q2

REPORT INFORMATION
  Report Type: 
  Country: None (occurrence: None)
  Receive Date: 20060405
  Receipt Date: 20060202
  Transmission Date: 20061013
  Serious: Yes (Hospitalization)
  Sender: FDA-Public Use
  Company Number: US-MERCK-0602USA01710

PATIENT
  Age: 44 Year
  Sex: Male
  Weight: 90 kg

DRUGS (10)
  1. VIOXX [Suspect]
     Indication: JOINT INJURY
     Route: 048
     Dates: start: 20030101, end: 20041001
  2. VIOXX [Suspect]
     Route: 048
     Dates: start: 20030101, end: 20041001
  3. VIOXX [Suspect]
     Indication: ARTHRALGIA
     Route: 048
     Dates: start: 20030101, end: 20041001
  4. VIOXX [Suspect]
     Route: 048
     Dates: start: 20030101, end: 20041001
  5. ASPIRIN [Concomitant]
     Route: 065
  6. VITAMINS (UNSPECIFIED) [Concomitant]
     Route: 065
  7. IBUPROFEN [Concomitant]
     Route: 065
  8. HYDROCHLOROTHIAZIDE [Suspect]
     Indication: HYPERTENSION
     Route: 048
     Dates: start: 20031001, end: 20040901
  9. NIACIN [Suspect]
     Indication: HIGH DENSITY LIPOPROTEIN DECREASED
     Route: 065
     Dates: start: 20031001, end: 20040901
  10. ASPIRIN [Concomitant]
     Route: 048

REACTIONS (20)
  - ADVERSE EVENT [None]
  - ANGINA PECTORIS [None]
  - ANHEDONIA [None]
  - ARTHRALGIA [None]
  - ATRIOVENTRICULAR BLOCK [None]
  - BLOOD TESTOSTERONE DECREASED [None]
  - CHEST PAIN [None]
  - CORONARY ARTERY DISEASE [None]
  - CORONARY ARTERY OCCLUSION [None]
  - ECZEMA [None]
  - FATIGUE [None]
  - HIGH DENSITY LIPOPROTEIN DECREASED [None]
  - HYPERTENSION [None]
  - JOINT INJURY [None]
  - MYOCARDIAL ISCHAEMIA [None]
  - PAIN [None]
  - RASH [None]
  - SEXUAL DYSFUNCTION [None]
  - STRESS [None]
  - X-RAY LIMB ABNORMAL [None]
